FAERS Safety Report 11689165 (Version 1)
Quarter: 2015Q4

REPORT INFORMATION
  Report Type: Spontaneous
  Country: US (occurrence: None)
  Receive Date: 20151030
  Receipt Date: 20151030
  Transmission Date: 20160304
  Serious: No
  Sender: FDA-Public Use
  Company Number: None

PATIENT
  Age: 36 Year
  Sex: Female
  Weight: 90.72 kg

DRUGS (2)
  1. AMPHETAMINE AND DEXTROAMPHET XR 10MG ACTAVIS [Suspect]
     Active Substance: AMPHETAMINE ASPARTATE MONOHYDRATE\AMPHETAMINE SULFATE\DEXTROAMPHETAMINE SACCHARATE\DEXTROAMPHETAMINE SULFATE
     Indication: ATTENTION DEFICIT/HYPERACTIVITY DISORDER
     Dosage: 1
     Route: 048
     Dates: start: 20150923, end: 20151028
  2. ADDERALL [Concomitant]
     Active Substance: AMPHETAMINE ASPARTATE\AMPHETAMINE SULFATE\DEXTROAMPHETAMINE SACCHARATE\DEXTROAMPHETAMINE SULFATE

REACTIONS (15)
  - Disorientation [None]
  - Anger [None]
  - Drug ineffective [None]
  - Joint stiffness [None]
  - Product substitution issue [None]
  - Headache [None]
  - Dysarthria [None]
  - Hypoaesthesia [None]
  - Vision blurred [None]
  - Agitation [None]
  - Nausea [None]
  - Musculoskeletal stiffness [None]
  - Migraine [None]
  - Photophobia [None]
  - Depressed mood [None]

NARRATIVE: CASE EVENT DATE: 20151028
